FAERS Safety Report 15306081 (Version 2)
Quarter: 2019Q3

REPORT INFORMATION
  Report Type: Report from Study
  Country: US (occurrence: US)
  Receive Date: 20180822
  Receipt Date: 20190819
  Transmission Date: 20191004
  Serious: Yes (Other)
  Sender: FDA-Public Use
  Company Number: US-ROCHE-2170372

PATIENT
  Age: 63 Year
  Sex: Male

DRUGS (1)
  1. OCREVUS [Suspect]
     Active Substance: OCRELIZUMAB
     Indication: PRIMARY PROGRESSIVE MULTIPLE SCLEROSIS
     Dosage: SUBSEQUENT DOSE ON 02/JAN/2018 AND ON 31/JUL/2018. LAST DOSE: 31/JAN/2019, ANTICIPATED DOSE: 31/JUL/
     Route: 042
     Dates: start: 20170703

REACTIONS (5)
  - Headache [Not Recovered/Not Resolved]
  - Tinnitus [Recovered/Resolved]
  - Herpes virus infection [Recovered/Resolved]
  - Ear pruritus [Recovered/Resolved]
  - Arthralgia [Not Recovered/Not Resolved]

NARRATIVE: CASE EVENT DATE: 20170703
